FAERS Safety Report 9778218 (Version 1)
Quarter: 2013Q4

REPORT INFORMATION
  Report Type: Spontaneous
  Country: US (occurrence: US)
  Receive Date: 20131223
  Receipt Date: 20131223
  Transmission Date: 20140711
  Serious: No
  Sender: FDA-Public Use
  Company Number: US-009507513-1312USA008627

PATIENT
  Age: 12 Year
  Sex: Female

DRUGS (3)
  1. SINGULAIR [Suspect]
     Indication: ASTHMA
     Dosage: 5 MG, ONCE DAILY
     Route: 048
  2. SINGULAIR [Suspect]
     Dosage: 5 MG, ONCE DAILY
     Route: 048
     Dates: start: 201311
  3. SINGULAIR [Suspect]
     Dosage: 5 MG, ONCE DAILY
     Route: 048
     Dates: start: 2013

REACTIONS (1)
  - Asthma [Recovered/Resolved]
